FAERS Safety Report 18926885 (Version 3)
Quarter: 2022Q2

REPORT INFORMATION
  Report Type: Report from Study
  Country: US (occurrence: US)
  Receive Date: 20210223
  Receipt Date: 20220518
  Transmission Date: 20220720
  Serious: Yes (Other)
  Sender: FDA-Public Use
  Company Number: US-TAKEDA-US201929864

PATIENT
  Sex: Female

DRUGS (1)
  1. HUMAN IMMUNOGLOBULIN G [Suspect]
     Active Substance: HUMAN IMMUNOGLOBULIN G
     Indication: Immunodeficiency common variable
     Dosage: 25 GRAM, MONTHLY
     Route: 042

REACTIONS (5)
  - Hip fracture [Unknown]
  - Blood immunoglobulin A abnormal [Unknown]
  - Headache [Unknown]
  - Nasopharyngitis [Unknown]
  - Hypersensitivity [Unknown]
